FAERS Safety Report 22520719 (Version 3)
Quarter: 2023Q4

REPORT INFORMATION
  Report Type: Spontaneous
  Country: US (occurrence: US)
  Receive Date: 20230605
  Receipt Date: 20231019
  Transmission Date: 20240110
  Serious: Yes (Hospitalization, Other)
  Sender: FDA-Public Use
  Company Number: US-PFIZER INC-PV202300074517

PATIENT
  Age: 38 Year
  Sex: Male

DRUGS (2)
  1. XELJANZ [Suspect]
     Active Substance: TOFACITINIB CITRATE
     Indication: Colitis ulcerative
     Dosage: 10 MG, 2X/DAY
     Route: 048
     Dates: start: 2023
  2. XELJANZ [Suspect]
     Active Substance: TOFACITINIB CITRATE
     Dosage: 10 MG, 2X/DAY
     Route: 048
     Dates: start: 20230327

REACTIONS (6)
  - Haematochezia [Recovering/Resolving]
  - Condition aggravated [Unknown]
  - Abdominal pain [Recovered/Resolved]
  - Off label use [Unknown]
  - Product dose omission issue [Unknown]
  - Frequent bowel movements [Unknown]
